FAERS Safety Report 5390687-1 (Version None)
Quarter: 2007Q3

REPORT INFORMATION
  Report Type: 
  Country: None (occurrence: None)
  Receive Date: 20070718
  Receipt Date: 20070710
  Transmission Date: 20080115
  Serious: Yes (Hospitalization)
  Sender: FDA-Public Use
  Company Number: US-ABBOTT-07P-163-0374298-00

PATIENT
  Sex: Female

DRUGS (4)
  1. DEPAKOTE ER [Suspect]
     Indication: CONVULSION
     Dates: start: 20000101, end: 20070710
  2. DEPAKOTE ER [Suspect]
     Indication: MIGRAINE
  3. METOPROLOL SUCCINATE [Concomitant]
     Indication: DRUG USE FOR UNKNOWN INDICATION
  4. RAMIPRIL [Concomitant]
     Indication: DRUG USE FOR UNKNOWN INDICATION

REACTIONS (3)
  - ABDOMINAL PAIN UPPER [None]
  - DIVERTICULITIS [None]
  - MEDICATION RESIDUE [None]
